FAERS Safety Report 12352233 (Version 3)
Quarter: 2016Q2

REPORT INFORMATION
  Report Type: Report from Study
  Country: MX (occurrence: MX)
  Receive Date: 20160510
  Receipt Date: 20160608
  Transmission Date: 20160815
  Serious: Yes (Disabling, Other)
  Sender: FDA-Public Use
  Company Number: PHHY2016MX063940

PATIENT
  Sex: Male

DRUGS (3)
  1. EXFORGE [Suspect]
     Active Substance: AMLODIPINE BESYLATE\VALSARTAN
     Dosage: 1 DF, (5MG) (1 AT NIGHT AND ANOTHER AT MORNING)
     Route: 048
  2. ROGASTRIL [Concomitant]
     Indication: INTESTINAL TRANSIT TIME ABNORMAL
     Dosage: 1 DF, QD
     Route: 048
     Dates: start: 201511
  3. EXFORGE [Suspect]
     Active Substance: AMLODIPINE BESYLATE\VALSARTAN
     Indication: HYPERTENSION
     Dosage: 1 DF (AMLODIPINE 10 MG, VALSARTAN 160 MG), (1 AT NIGHT AND ANOTHER AT MORNING),QD
     Route: 065
     Dates: start: 201511

REACTIONS (10)
  - Dysstasia [Recovering/Resolving]
  - Abasia [Recovering/Resolving]
  - Muscular weakness [Recovering/Resolving]
  - Anal incontinence [Recovered/Resolved]
  - Urinary incontinence [Not Recovered/Not Resolved]
  - Movement disorder [Unknown]
  - Mobility decreased [Recovering/Resolving]
  - Anal incontinence [Not Recovered/Not Resolved]
  - Cerebellar ataxia [Unknown]
  - Arthralgia [Unknown]
